FAERS Safety Report 6115256-7 (Version None)
Quarter: 2009Q1

REPORT INFORMATION
  Report Type: 
  Country: None (occurrence: None)
  Receive Date: 20090313
  Receipt Date: 20090306
  Transmission Date: 20090719
  Serious: Yes (Other)
  Sender: FDA-Public Use
  Company Number: JP-MERCK-0903USA01684

PATIENT
  Age: 97 Year
  Sex: Female

DRUGS (3)
  1. PEPCID RPD [Suspect]
     Indication: GASTRITIS
     Route: 048
     Dates: start: 20090213
  2. CELECOX [Suspect]
     Indication: OSTEOARTHRITIS
     Route: 048
     Dates: start: 20090213, end: 20090226
  3. HYALURONATE SODIUM [Concomitant]
     Route: 065
     Dates: start: 20080611

REACTIONS (1)
  - TOXIC SKIN ERUPTION [None]
